FAERS Safety Report 9258105 (Version 2)
Quarter: 2013Q2

REPORT INFORMATION
  Report Type: Spontaneous
  Country: US (occurrence: None)
  Receive Date: 20130423
  Receipt Date: 20130617
  Transmission Date: 20140414
  Serious: Yes (Other)
  Sender: FDA-Public Use
  Company Number: ACO_35580_2013

PATIENT
  Age: 54 Year
  Sex: Male
  Weight: 74.8 kg

DRUGS (9)
  1. AMPYRA (DALFAMPRIDINE) TABLET, 10 MG [Suspect]
     Indication: PRODUCT USED FOR UNKNOWN INDICATION
     Route: 048
  2. GILENYA (FINGOLIMOD HYDROCHLORIDE) [Concomitant]
  3. ASA (ASA) [Concomitant]
  4. ATORVASTATIN (ATORVASTATIN) [Concomitant]
  5. FOLIC ACID (FOLIC ACID) [Concomitant]
  6. VITAMIN D3 (COLECALCIFEROL) [Concomitant]
  7. LISINOPRIL (LISINOPRIL) [Concomitant]
  8. NEXIUM (ESOMEPRAZOLE SODIUM) [Concomitant]
  9. LUTEIN (XANTOFYL) [Concomitant]

REACTIONS (1)
  - Renal failure chronic [None]
